FAERS Safety Report 18064864 (Version 1)
Quarter: 2020Q3

REPORT INFORMATION
  Report Type: Other
  Country: DE (occurrence: DE)
  Receive Date: 20200724
  Receipt Date: 20200724
  Transmission Date: 20201103
  Serious: Yes (Life-Threatening, Hospitalization, Other)
  Sender: FDA-Public Use
  Company Number: DE-HEALTHCARE PHARMACEUTICALS LTD.-2087680

PATIENT
  Age: 52 Year
  Sex: Female

DRUGS (3)
  1. DOXORUBICIN HYDROCHLORIDE. [Suspect]
     Active Substance: DOXORUBICIN HYDROCHLORIDE
     Indication: INVASIVE DUCTAL BREAST CARCINOMA
     Route: 065
  2. CYCLOPHOSPHAMIDE. [Suspect]
     Active Substance: CYCLOPHOSPHAMIDE
     Route: 065
  3. DOCETAXEL. [Suspect]
     Active Substance: DOCETAXEL
     Route: 065

REACTIONS (9)
  - Diarrhoea haemorrhagic [Unknown]
  - Thrombocytopenia [Unknown]
  - Disseminated intravascular coagulation [Unknown]
  - Acute kidney injury [Recovering/Resolving]
  - Mental status changes [Recovering/Resolving]
  - Thrombotic microangiopathy [Recovered/Resolved]
  - Respiratory failure [Unknown]
  - Haemolytic anaemia [Unknown]
  - Seizure [Recovering/Resolving]
